FAERS Safety Report 8452727-2 (Version None)
Quarter: 2012Q2

REPORT INFORMATION
  Report Type: 
  Country: None (occurrence: None)
  Receive Date: 20120620
  Receipt Date: 20120426
  Transmission Date: 20120825
  Serious: Yes (Hospitalization)
  Sender: FDA-Public Use
  Company Number: US-VERTEX PHARMACEUTICALS INC.-AE-2012-005867

PATIENT
  Sex: Male
  Weight: 74.91 kg

DRUGS (7)
  1. LORAZEPAM [Concomitant]
     Route: 048
  2. INCIVEK [Suspect]
     Indication: HEPATITIS C
     Route: 048
     Dates: start: 20120224, end: 20120417
  3. INCIVEK [Suspect]
     Route: 048
     Dates: start: 20120420
  4. PEGASYS [Concomitant]
     Indication: HEPATITIS C
     Route: 058
     Dates: start: 20120224, end: 20120417
  5. PEGASYS [Concomitant]
     Route: 058
     Dates: start: 20120420
  6. RIBAVIRIN [Concomitant]
     Indication: HEPATITIS C
     Route: 048
     Dates: start: 20120224, end: 20120417
  7. OMEPRAZOLE [Concomitant]
     Indication: GASTROOESOPHAGEAL REFLUX DISEASE
     Route: 048

REACTIONS (10)
  - CHILLS [None]
  - NAUSEA [None]
  - HAEMOGLOBIN DECREASED [None]
  - DYSPNOEA [None]
  - FATIGUE [None]
  - DIZZINESS [None]
  - PYREXIA [None]
  - ARTHRALGIA [None]
  - FEELING ABNORMAL [None]
  - HEADACHE [None]
